FAERS Safety Report 4423831-0 (Version None)
Quarter: 2004Q3

REPORT INFORMATION
  Report Type: 
  Country: None (occurrence: None)
  Receive Date: 20040715
  Receipt Date: 20040316
  Transmission Date: 20050211
  Serious: Yes (Hospitalization)
  Sender: FDA-Public Use
  Company Number: 2003177362US

PATIENT
  Sex: 0

DRUGS (2)
  1. DEPO-MEDROL [Suspect]
     Dosage: 2 ML FROM A 5 ML VIAL
  2. XYLOCAINE [Suspect]

REACTIONS (1)
  - ARTHRITIS BACTERIAL [None]
